FAERS Safety Report 20218630 (Version 2)
Quarter: 2022Q1

REPORT INFORMATION
  Report Type: Spontaneous
  Country: DE (occurrence: DE)
  Receive Date: 20211222
  Receipt Date: 20220202
  Transmission Date: 20220424
  Serious: Yes (Hospitalization, Other)
  Sender: FDA-Public Use
  Company Number: DE-002147023-NVSC2021DE222834

PATIENT
  Age: 74 Year
  Sex: Male

DRUGS (40)
  1. COTRIMOXAZOLE [Suspect]
     Active Substance: SULFAMETHOXAZOLE\TRIMETHOPRIM
     Indication: Product used for unknown indication
     Dosage: 480 MG,THERAPY START DATE :ASKU
     Route: 065
     Dates: end: 20140401
  2. CARVEDILOL [Suspect]
     Active Substance: CARVEDILOL
     Indication: Blood pressure abnormal
     Dosage: 25 MILLIGRAM DAILY; THERAPY START DATE :ASKU,THERAPY END DATE :ASKU
     Route: 065
  3. CARVEDILOL [Suspect]
     Active Substance: CARVEDILOL
     Dosage: 25 MILLIGRAM DAILY; THERAPY START DATE :ASKU,THERAPY END DATE :ASKU
     Route: 065
  4. DIGITOXIN [Suspect]
     Active Substance: DIGITOXIN
     Indication: Cardiac disorder
     Dosage: 1 DOSAGE FORMS DAILY; (NOT ON SUNDAYS),THERAPY START DATE :ASKU,THERAPY END DATE :ASKU
     Route: 065
  5. DOXAZOSIN [Suspect]
     Active Substance: DOXAZOSIN MESYLATE
     Indication: Hypertension
     Dosage: 4 MG (HALF-2-2-0) ,THERAPY START DATE :ASKU,THERAPY END DATE :ASKU
     Route: 065
  6. DOXAZOSIN [Suspect]
     Active Substance: DOXAZOSIN MESYLATE
     Dosage: 16 MILLIGRAM DAILY; 8 MG, BID (RETARD)SUSTAINED RELEASE, THERAPY START DATE :ASKU,THERAPY END DATE :
     Route: 065
  7. DOXAZOSIN [Suspect]
     Active Substance: DOXAZOSIN MESYLATE
     Dosage: 8 MG (2 AND 1/2),THERAPY START DATE :ASKU,THERAPY END DATE :ASKU
     Route: 065
  8. DOXAZOSIN [Suspect]
     Active Substance: DOXAZOSIN MESYLATE
     Dosage: 2 DOSAGE FORMS DAILY;  (8 MG),THERAPY START DATE :ASKU,THERAPY END DATE :ASKU
     Route: 065
  9. DOXAZOSIN [Suspect]
     Active Substance: DOXAZOSIN MESYLATE
     Dosage: 16 MG, THERAPY START AND END DATE: ASKU
     Route: 065
  10. DOXAZOSIN [Suspect]
     Active Substance: DOXAZOSIN MESYLATE
     Dosage: 8 MG (2 AND 1/2); THERAPY START AND END DATE: ASKU
     Route: 065
  11. FLUVASTATIN [Suspect]
     Active Substance: FLUVASTATIN SODIUM
     Indication: Blood cholesterol
     Dosage: THERAPY START DATE :ASKU,THERAPY END DATE :ASKU
     Route: 065
  12. FUROSEMIDE [Suspect]
     Active Substance: FUROSEMIDE
     Indication: Fluid retention
     Dosage: 40 MG, PRN,THERAPY START DATE :ASKU,THERAPY END DATE :ASKU
     Route: 065
  13. NITRENDIPINE [Suspect]
     Active Substance: NITRENDIPINE
     Indication: Blood pressure abnormal
     Dosage: 40 MILLIGRAM DAILY; 20 MG, BID,THERAPY START DATE :ASKU,THERAPY END DATE :ASKU
     Route: 065
  14. NITRENDIPINE [Suspect]
     Active Substance: NITRENDIPINE
     Dosage: 20 MILLIGRAM DAILY; 10 MG, BID,THERAPY START DATE :ASKU,THERAPY END DATE :ASKU
     Route: 065
  15. NITRENDIPINE [Suspect]
     Active Substance: NITRENDIPINE
     Dosage: 2 DOSAGE FORMS DAILY;  (20 MG), THERAPY START DATE :ASKU,THERAPY END DATE :ASKU
     Route: 065
  16. NITRENDIPINE [Suspect]
     Active Substance: NITRENDIPINE
     Dosage: 20 MG (IN THE MORNING AFTER ABOUT 1 TO 2 HOURS); THERAPY START AND END DATE: ASKU
     Route: 065
  17. VALGANCICLOVIR [Suspect]
     Active Substance: VALGANCICLOVIR
     Indication: Product used for unknown indication
     Dosage: 450 MG; THERAPY START AND END DATE: ASKU; VALGANCICLOVIR HYDROCHLORIDE
     Route: 065
  18. CANDESARTAN CILEXETIL [Suspect]
     Active Substance: CANDESARTAN CILEXETIL
     Indication: Blood pressure abnormal
     Dosage: 32 MILLIGRAM DAILY; THERAPY START DATE: ASKU
     Route: 065
     Dates: end: 202102
  19. TAMSULOSIN [Suspect]
     Active Substance: TAMSULOSIN
     Indication: Prostate infection
     Dosage: .4 MILLIGRAM DAILY; TAMSULOSIN HYDROCHLORIDE; THERAPY START AND END DATE: ASKU
     Route: 065
  20. PANTOPRAZOLE [Suspect]
     Active Substance: PANTOPRAZOLE
     Indication: Abdominal discomfort
     Dosage: 20 MILLIGRAM DAILY; THERAPY START DATE :ASKU
     Route: 065
     Dates: end: 201705
  21. TACROLIMUS [Suspect]
     Active Substance: TACROLIMUS
     Indication: Transplant
     Dosage: UNK,THERAPY START DATE :ASKU,THERAPY END DATE :ASKU
     Route: 065
  22. TACROLIMUS [Suspect]
     Active Substance: TACROLIMUS
     Dosage: 0.5 MG, Q12H (0.5 MG, TWICE DAILY), THERAPY START AND END DATE: ASKU
     Route: 065
  23. TACROLIMUS [Suspect]
     Active Substance: TACROLIMUS
     Dosage: 1 MG, Q12H (1 MG, UNKNOWN FREQUENCY); THERAPY START AND END DATE: ASKU
     Route: 065
  24. TORSEMIDE [Suspect]
     Active Substance: TORSEMIDE
     Indication: Product used for unknown indication
     Dosage: 0.5 DF,THERAPY START DATE :ASKU,THERAPY END DATE :ASKU
     Route: 065
  25. HYGROTON [Suspect]
     Active Substance: CHLORTHALIDONE
     Indication: Blood pressure abnormal
     Dosage: .5 DOSAGE FORMS DAILY; THERAPY START DATE :ASKU,THERAPY END DATE :ASKU
     Route: 065
  26. AMPHOTERICIN B [Suspect]
     Active Substance: AMPHOTERICIN B
     Indication: Product used for unknown indication
     Dosage: 3 DOSAGE FORMS DAILY; 1 DF, TID ,THERAPY START DATE :ASKU
     Route: 065
     Dates: end: 20140729
  27. TAMSULOSIN HYDROCHLORIDE [Suspect]
     Active Substance: TAMSULOSIN HYDROCHLORIDE
     Indication: Prostate infection
     Dosage: .4 MILLIGRAM DAILY; THERAPY START DATE :ASKU,THERAPY END DATE :ASKU
     Route: 065
  28. ARANESP [Suspect]
     Active Substance: DARBEPOETIN ALFA
     Indication: Product used for unknown indication
     Dosage: 10 MG, QW,THERAPY START DATE :ASKU
     Route: 065
     Dates: end: 20141210
  29. PROGRAF [Suspect]
     Active Substance: TACROLIMUS
     Indication: Transplant
     Dosage: 1.0 MG ,THERAPY START DATE :ASKU
     Route: 065
     Dates: end: 2018
  30. PROGRAF [Suspect]
     Active Substance: TACROLIMUS
     Dosage: 1 DOSAGE FORMS DAILY; 0.5 MG, BID,THERAPY START DATE :ASKU,THERAPY END DATE :ASKU
     Route: 065
  31. MARCUMAR [Suspect]
     Active Substance: PHENPROCOUMON
     Indication: Cardiac disorder
     Dosage: 0.5 DF,THERAPY START DATE :ASKU,THERAPY END DATE :ASKU
     Route: 065
  32. VALCYTE [Suspect]
     Active Substance: VALGANCICLOVIR HYDROCHLORIDE
     Indication: Product used for unknown indication
     Dosage: 450 MILLIGRAM DAILY; THERAPY START DATE :ASKU
     Route: 065
     Dates: end: 20140801
  33. CALCIUM CARBONATE\CHOLECALCIFEROL [Suspect]
     Active Substance: CALCIUM CARBONATE\CHOLECALCIFEROL
     Indication: Product used for unknown indication
     Dosage: 2 DOSAGE FORMS DAILY; 1 DF, BID,THERAPY START DATE :ASKU
     Route: 065
     Dates: end: 20170729
  34. CHOLECALCIFEROL [Suspect]
     Active Substance: CHOLECALCIFEROL
     Indication: Product used for unknown indication
     Dosage: THERAPY START DATE :ASKU,THERAPY END DATE :ASKU
     Route: 065
  35. FERROUS GLYCINE SULFATE [Suspect]
     Active Substance: FERROUS GLYCINE SULFATE
     Indication: Product used for unknown indication
     Dosage: 100 MILLIGRAM DAILY;  THERAPY START DATE :ASKU
     Route: 065
     Dates: end: 20150610
  36. SODIUM BICARBONATE [Suspect]
     Active Substance: SODIUM BICARBONATE
     Indication: Product used for unknown indication
     Dosage: 1 GRAM DAILY; THERAPY START DATE :ASKU,THERAPY END DATE :ASKU
     Route: 065
  37. CANDESARTAN CILEXETIL [Suspect]
     Active Substance: CANDESARTAN CILEXETIL
     Indication: Blood pressure measurement
     Dosage: 32 MILLIGRAM DAILY; THERAPY START DATE :ASKU
     Route: 065
     Dates: end: 20210226
  38. MYFORTIC [Suspect]
     Active Substance: MYCOPHENOLATE SODIUM
     Indication: Transplant
     Dosage: 2 DOSAGE FORMS DAILY; 1 DF, BID,THERAPY START DATE :ASKU,THERAPY END DATE :ASKU
     Route: 065
  39. SODIUM BICARBONATE [Suspect]
     Active Substance: SODIUM BICARBONATE
     Indication: Product used for unknown indication
     Dosage: 1 GRAM DAILY; THERAPY START AND END DATE: ASKU
     Route: 065
  40. CHOLECALCIFEROL [Suspect]
     Active Substance: CHOLECALCIFEROL
     Indication: Product used for unknown indication
     Dosage: UNK, THERAPY START AND END DATE: ASKU
     Route: 065

REACTIONS (51)
  - Haemorrhage [Unknown]
  - Squamous cell carcinoma of skin [Recovered/Resolved]
  - Hepatic steatosis [Unknown]
  - Swelling [Unknown]
  - Blood pressure fluctuation [Not Recovered/Not Resolved]
  - Aortic arteriosclerosis [Unknown]
  - Bradycardia [Unknown]
  - Arteriosclerosis [Unknown]
  - Renal artery stenosis [Unknown]
  - Chronic kidney disease [Unknown]
  - Basal cell carcinoma [Recovered/Resolved]
  - Aortic dilatation [Unknown]
  - Renal cyst haemorrhage [Not Recovered/Not Resolved]
  - Vena cava injury [Unknown]
  - Hypertension [Unknown]
  - Thrombosis [Unknown]
  - Left ventricular hypertrophy [Unknown]
  - Spinal stenosis [Unknown]
  - Renal artery stenosis [Unknown]
  - Carotid arteriosclerosis [Unknown]
  - Spinal osteoarthritis [Unknown]
  - Delayed graft function [Unknown]
  - Atrial fibrillation [Unknown]
  - Restless legs syndrome [Unknown]
  - Haemoglobin decreased [Recovered/Resolved]
  - Blood potassium increased [Unknown]
  - Metabolic acidosis [Unknown]
  - Dizziness [Unknown]
  - Haemorrhoids [Unknown]
  - Vitamin D decreased [Recovered/Resolved]
  - Incorrect dose administered [Unknown]
  - Glycosylated haemoglobin increased [Unknown]
  - Gastrooesophageal reflux disease [Unknown]
  - Red blood cell count decreased [Recovered/Resolved]
  - Hyperparathyroidism [Unknown]
  - Intraductal papillary mucinous neoplasm [Unknown]
  - Benign prostatic hyperplasia [Unknown]
  - C-reactive protein increased [Unknown]
  - Vertigo [Unknown]
  - COVID-19 [Unknown]
  - Activated partial thromboplastin time prolonged [Unknown]
  - Oedema peripheral [Unknown]
  - Mean cell volume increased [Recovered/Resolved]
  - Atrioventricular block [Unknown]
  - Actinic keratosis [Unknown]
  - Rectal prolapse [Unknown]
  - Hepatosplenomegaly [Unknown]
  - Presyncope [Unknown]
  - Myalgia [Unknown]
  - Diverticulum intestinal [Unknown]
  - Fear [Unknown]

NARRATIVE: CASE EVENT DATE: 20130401
